FAERS Safety Report 19111410 (Version 1)
Quarter: 2021Q2

REPORT INFORMATION
  Report Type: Spontaneous
  Country: US (occurrence: US)
  Receive Date: 20210409
  Receipt Date: 20210409
  Transmission Date: 20210717
  Serious: Yes (Death, Hospitalization)
  Sender: FDA-Public Use
  Company Number: None

PATIENT
  Age: 63 Year
  Sex: Male
  Weight: 48.5 kg

DRUGS (2)
  1. TAXOL [Suspect]
     Active Substance: PACLITAXEL
     Dates: end: 20201028
  2. CARBOPLATIN 0 MG [Suspect]
     Active Substance: CARBOPLATIN
     Dates: end: 20201028

REACTIONS (4)
  - Stent placement [None]
  - Tracheal disorder [None]
  - Postoperative thoracic procedure complication [None]
  - Jejunostomy [None]

NARRATIVE: CASE EVENT DATE: 20210125
